FAERS Safety Report 9050455 (Version 1)
Quarter: 2013Q1

REPORT INFORMATION
  Report Type: Spontaneous
  Country: CH (occurrence: CH)
  Receive Date: 20130205
  Receipt Date: 20130205
  Transmission Date: 20140127
  Serious: Yes (Other)
  Sender: FDA-Public Use
  Company Number: CH-ACTELION-A-CH2012-72184

PATIENT
  Age: 10 Year
  Sex: Female
  Weight: 49 kg

DRUGS (3)
  1. TRACLEER [Suspect]
     Indication: PULMONARY ARTERIAL HYPERTENSION
     Dosage: 125 MG, BID
     Route: 048
     Dates: start: 201202
  2. SILDENAFIL [Concomitant]
     Dosage: UNK
     Dates: start: 201205
  3. MARCOUMAR [Concomitant]
     Dosage: UNK
     Dates: start: 201202

REACTIONS (2)
  - Increased appetite [Unknown]
  - Weight increased [Unknown]
